FAERS Safety Report 11029508 (Version 1)
Quarter: 2015Q2

REPORT INFORMATION
  Report Type: Spontaneous
  Country: US (occurrence: None)
  Receive Date: 20150413
  Receipt Date: 20150413
  Transmission Date: 20150821
  Serious: Yes (Other)
  Sender: FDA-Public Use
  Company Number: None

PATIENT
  Age: 68 Year
  Sex: Male
  Weight: 78.02 kg

DRUGS (2)
  1. COREG [Concomitant]
     Active Substance: CARVEDILOL
  2. LISINOPRIL. [Suspect]
     Active Substance: LISINOPRIL
     Indication: HYPERTENSION
     Route: 048
     Dates: start: 20150303, end: 20150412

REACTIONS (5)
  - Neck pain [None]
  - Influenza [None]
  - Back pain [None]
  - Sinus congestion [None]
  - Musculoskeletal pain [None]

NARRATIVE: CASE EVENT DATE: 20150412
